FAERS Safety Report 18222239 (Version 1)
Quarter: 2020Q3

REPORT INFORMATION
  Report Type: Spontaneous
  Country: JP (occurrence: JP)
  Receive Date: 20200902
  Receipt Date: 20200902
  Transmission Date: 20201103
  Serious: Yes (Hospitalization)
  Sender: FDA-Public Use
  Company Number: JP-FERRINGPH-2020FE05802

PATIENT
  Age: 34 Year
  Sex: Female

DRUGS (4)
  1. MENOTROPHIN [Suspect]
     Active Substance: MENOTROPINS
     Indication: ASSISTED REPRODUCTIVE TECHNOLOGY
     Route: 065
  2. LUTINUS [Suspect]
     Active Substance: PROGESTERONE
     Indication: ASSISTED REPRODUCTIVE TECHNOLOGY
     Dosage: 2 DF, DAILY
     Route: 065
  3. ESTRANA [Concomitant]
     Active Substance: ESTRADIOL
     Indication: ASSISTED REPRODUCTIVE TECHNOLOGY
     Dosage: 0.72 MG
     Route: 065
  4. LETROZOLE. [Concomitant]
     Active Substance: LETROZOLE
     Indication: ASSISTED REPRODUCTIVE TECHNOLOGY
     Route: 065

REACTIONS (3)
  - Off label use [Unknown]
  - Ectopic pregnancy [Recovered/Resolved]
  - Product use in unapproved indication [Unknown]
